FAERS Safety Report 11635051 (Version 1)
Quarter: 2015Q4

REPORT INFORMATION
  Report Type: Spontaneous
  Country: US (occurrence: US)
  Receive Date: 20151015
  Receipt Date: 20151015
  Transmission Date: 20160304
  Serious: No
  Sender: FDA-Public Use
  Company Number: US-SA-2015SA082947

PATIENT
  Age: 9 Year
  Sex: Male

DRUGS (8)
  1. VITAMIN D [Concomitant]
     Active Substance: CHOLECALCIFEROL
     Dosage: 600 UNITS IN G TUBE DOSE:600 UNIT(S)
  2. ATENOLOL. [Concomitant]
     Active Substance: ATENOLOL
  3. CUVPOSA [Concomitant]
     Active Substance: GLYCOPYRROLATE
     Dosage: 5-6MG, TID, PRN
  4. HEPARIN [Concomitant]
     Active Substance: HEPARIN SODIUM
     Dosage: HEPARIN FLUSH 30 U TO DE-ACCESS PORT DOSE:30 UNIT(S)
  5. MIRALAX [Concomitant]
     Active Substance: POLYETHYLENE GLYCOL 3350
  6. EMLA [Concomitant]
     Active Substance: LIDOCAINE\PRILOCAINE
     Dosage: ON PORT SITE
  7. LUMIZYME [Suspect]
     Active Substance: ALGLUCOSIDASE ALFA
     Indication: GLYCOGEN STORAGE DISEASE TYPE II
     Route: 041
  8. RANITIDINE [Concomitant]
     Active Substance: RANITIDINE\RANITIDINE HYDROCHLORIDE

REACTIONS (1)
  - Device issue [Recovered/Resolved]

NARRATIVE: CASE EVENT DATE: 20150607
